FAERS Safety Report 7394465-3 (Version None)
Quarter: 2011Q2

REPORT INFORMATION
  Report Type: 
  Country: None (occurrence: None)
  Receive Date: 20110405
  Receipt Date: 20110323
  Transmission Date: 20111010
  Serious: Yes (Other)
  Sender: FDA-Public Use
  Company Number: PHHY2010DE87549

PATIENT
  Age: 44 Year
  Sex: Female

DRUGS (6)
  1. INSULIN ACTRAPID [Concomitant]
     Indication: DIABETES MELLITUS
  2. LEVOTHYROXINE SODIUM [Concomitant]
  3. PROTAPHANE MC [Concomitant]
     Indication: DIABETES MELLITUS
  4. RESOCHIN [Concomitant]
  5. SALAGEN [Suspect]
     Indication: VULVOVAGINAL DRYNESS
     Dosage: 3 DF, QD
     Route: 048
     Dates: start: 20101021, end: 20101101
  6. SALAGEN [Suspect]
     Dosage: 3 DF, UNK
     Route: 048
     Dates: start: 20101201, end: 20110203

REACTIONS (5)
  - BLOOD GLUCOSE FLUCTUATION [None]
  - HYPOGLYCAEMIA [None]
  - COUGH [None]
  - GLYCOSYLATED HAEMOGLOBIN INCREASED [None]
  - BACK PAIN [None]
